FAERS Safety Report 21718554 (Version 1)
Quarter: 2022Q4

REPORT INFORMATION
  Report Type: Other
  Country: GB (occurrence: GB)
  Receive Date: 20221212
  Receipt Date: 20221212
  Transmission Date: 20230112
  Serious: Yes (Hospitalization, Other)
  Sender: FDA-Public Use
  Company Number: None

PATIENT
  Age: 76 Year
  Sex: Male

DRUGS (4)
  1. FLUOXETINE [Suspect]
     Active Substance: FLUOXETINE HYDROCHLORIDE
     Indication: Product used for unknown indication
     Dosage: 40 MILLIGRAM (PER DAY)(CAPSULE) (20MG CAPSULES TWO EVERY MORNING)
     Route: 065
  2. HYDROMOL [EMULSIFYING WAX;PARAFFIN SOFT] [Concomitant]
     Indication: Product used for unknown indication
     Dosage: UNK(OINTMENT) (APPLY TO SKIN OR USE AS A SOAP SUBSTITUTE )
     Route: 061
  3. PHENERGAN [Concomitant]
     Active Substance: PROMETHAZINE HYDROCHLORIDE
     Indication: Product used for unknown indication
     Dosage: 25 MILLIGRAM (TABLET)(PER DAY)(EVERY NIGHT )
     Route: 065
  4. HONEY [Concomitant]
     Active Substance: HONEY
     Indication: Product used for unknown indication
     Dosage: UNK (CREAM)
     Route: 061

REACTIONS (2)
  - Osteoporosis [Unknown]
  - Femoral neck fracture [Unknown]
